FAERS Safety Report 13514369 (Version 1)
Quarter: 2017Q2

REPORT INFORMATION
  Report Type: Spontaneous
  Country: AU (occurrence: AU)
  Receive Date: 20170504
  Receipt Date: 20170504
  Transmission Date: 20170830
  Serious: Yes (Hospitalization, Other)
  Sender: FDA-Public Use
  Company Number: AU-ROCHE-1927039

PATIENT
  Age: 70 Year
  Sex: Female

DRUGS (4)
  1. TAMIFLU [Suspect]
     Active Substance: OSELTAMIVIR PHOSPHATE
     Indication: MALAISE
     Dosage: 1 TIME
     Route: 065
     Dates: start: 20161017
  2. VENTOLIN [Concomitant]
     Active Substance: ALBUTEROL SULFATE
  3. ELTROXIN [Concomitant]
     Active Substance: LEVOTHYROXINE
  4. DYMISTA [Concomitant]
     Active Substance: AZELASTINE HYDROCHLORIDE\FLUTICASONE PROPIONATE
     Dosage: FORM STRENGTH: 125/50 UNIT NOT REPORTED
     Route: 065

REACTIONS (3)
  - Retching [Recovered/Resolved]
  - Drug ineffective [Unknown]
  - Nausea [Recovered/Resolved]

NARRATIVE: CASE EVENT DATE: 20161017
